FAERS Safety Report 16754349 (Version 1)
Quarter: 2019Q3

REPORT INFORMATION
  Report Type: Spontaneous
  Country: US (occurrence: US)
  Receive Date: 20190829
  Receipt Date: 20190829
  Transmission Date: 20191005
  Serious: No
  Sender: FDA-Public Use
  Company Number: US-MYLANLABS-2019M1078280

PATIENT
  Sex: Male

DRUGS (1)
  1. CYSTAGON [Suspect]
     Active Substance: CYSTEAMINE BITARTRATE
     Indication: RENAL TRANSPLANT
     Dosage: 750 MILLIGRAM, QID
     Route: 048
     Dates: start: 20090717

REACTIONS (1)
  - Pyrexia [Not Recovered/Not Resolved]
